FAERS Safety Report 7399604-6 (Version None)
Quarter: 2011Q2

REPORT INFORMATION
  Report Type: 
  Country: None (occurrence: None)
  Receive Date: 20110407
  Receipt Date: 20110214
  Transmission Date: 20111010
  Serious: Yes (Hospitalization, Other)
  Sender: FDA-Public Use
  Company Number: US-BAYER-201042091NA

PATIENT
  Sex: Female
  Weight: 64.853 kg

DRUGS (14)
  1. ZOFRAN [Concomitant]
     Dosage: UNK
     Dates: start: 20090326
  2. ASPIRIN [Concomitant]
     Dosage: 81 MG, UNK
     Dates: start: 20091222
  3. UNCODEABLE ^UNCLASSIFIABLE^ [Concomitant]
     Dosage: 250 MG, UNK
     Route: 048
     Dates: start: 20080919
  4. FOLIC ACID [Concomitant]
  5. YAZ [Suspect]
     Indication: CONTRACEPTION
     Dosage: UNK UNK, QD
     Route: 048
     Dates: start: 20080422, end: 20090326
  6. SINGULAIR [Concomitant]
     Dosage: 10 MG, UNK
     Route: 048
     Dates: start: 20080422
  7. TOPAMAX [Concomitant]
     Dosage: UNK
     Dates: start: 20090909
  8. MORPHINE [Concomitant]
     Dosage: UNK
     Dates: start: 20090326
  9. NORCO [Concomitant]
     Dosage: UNK UNK, PRN
     Dates: start: 20090401
  10. YAZ [Suspect]
     Indication: MENSTRUAL CYCLE MANAGEMENT
  11. XYZAL [Concomitant]
     Dosage: 5 MG, UNK
     Route: 048
     Dates: start: 20080422
  12. CEPHALEXIN [Concomitant]
     Dosage: 500 MG, UNK
     Dates: start: 20080722
  13. YAZ [Suspect]
     Indication: ACNE
  14. AMITRIPTYLINE [Concomitant]
     Indication: MIGRAINE
     Dosage: UNK
     Dates: start: 20091222

REACTIONS (1)
  - PULMONARY EMBOLISM [None]
